FAERS Safety Report 20341046 (Version 1)
Quarter: 2022Q1

REPORT INFORMATION
  Report Type: Report from Study
  Country: US (occurrence: US)
  Receive Date: 20220117
  Receipt Date: 20220117
  Transmission Date: 20220423
  Serious: No
  Sender: FDA-Public Use
  Company Number: US-KYOWAKIRIN-2022BKK000111

PATIENT

DRUGS (1)
  1. CRYSVITA [Suspect]
     Active Substance: BUROSUMAB-TWZA
     Indication: Hereditary hypophosphataemic rickets
     Dosage: UNK, EVERY 14 DAYS
     Route: 065
     Dates: start: 20211203

REACTIONS (3)
  - Increased appetite [Unknown]
  - Injection site urticaria [Unknown]
  - Injection site erythema [Unknown]

NARRATIVE: CASE EVENT DATE: 20211201
